FAERS Safety Report 4498078-2 (Version None)
Quarter: 2004Q3

REPORT INFORMATION
  Report Type: 
  Country: None (occurrence: None)
  Receive Date: 20040927
  Receipt Date: 20040726
  Transmission Date: 20050211
  Serious: No
  Sender: FDA-Public Use
  Company Number: USA040773705

PATIENT
  Age: 58 Year
  Sex: Female

DRUGS (2)
  1. STRATTERA [Suspect]
     Indication: ATTENTION DEFICIT/HYPERACTIVITY DISORDER
     Dosage: 18 MG/1 DAY
     Dates: start: 20040711, end: 20040723
  2. HERBAL NOS W/MINERALS NOS/VITAMINS NOS [Concomitant]

REACTIONS (2)
  - HEADACHE [None]
  - TINNITUS [None]
